FAERS Safety Report 20662209 (Version 3)
Quarter: 2022Q2

REPORT INFORMATION
  Report Type: Report from Study
  Country: TR (occurrence: None)
  Receive Date: 20220401
  Receipt Date: 20220411
  Transmission Date: 20220721
  Serious: Yes (Hospitalization)
  Sender: FDA-Public Use
  Company Number: TR-ROCHE-3062760

PATIENT
  Age: 68 Year
  Sex: Female
  Weight: 95 kg

DRUGS (8)
  1. ATEZOLIZUMAB [Suspect]
     Active Substance: ATEZOLIZUMAB
     Indication: Ovarian cancer
     Dosage: START DATE OF MOST RECENT DOSE OF STUDY DRUG 1200 MG PRIOR TO SAE 18-MAR-2022 1:00 PM?END DATE OF MO
     Route: 042
     Dates: start: 20220318
  2. BEVACIZUMAB [Suspect]
     Active Substance: BEVACIZUMAB
     Indication: Ovarian cancer
     Dosage: START DATE OF MOST RECENT DOSE OF STUDY DRUG 1425 MG PRIOR TO SAE 18-MAR-2022 2:40 PM?END DATE OF MO
     Route: 042
     Dates: start: 20220318
  3. DILTIAZEM [Concomitant]
     Active Substance: DILTIAZEM
     Indication: Hypertension
     Route: 048
     Dates: start: 20180409
  4. NEURONTIN [Concomitant]
     Active Substance: GABAPENTIN
     Indication: Diabetic neuropathy
     Route: 048
     Dates: start: 20210807
  5. METFORMIN HYDROCHLORIDE [Concomitant]
     Active Substance: METFORMIN HYDROCHLORIDE
     Indication: Diabetes mellitus
     Route: 048
     Dates: start: 2009
  6. ASPIRIN [Concomitant]
     Active Substance: ASPIRIN
     Indication: Anticoagulant therapy
     Route: 048
  7. SERETIDE [Concomitant]
     Active Substance: FLUTICASONE PROPIONATE\SALMETEROL XINAFOATE
     Indication: Asthma
     Route: 048
     Dates: start: 20210517
  8. MAGNEZINC [Concomitant]
     Route: 048

REACTIONS (1)
  - Pleural effusion [Not Recovered/Not Resolved]

NARRATIVE: CASE EVENT DATE: 20220326
